FAERS Safety Report 4446113-X (Version None)
Quarter: 2004Q3

REPORT INFORMATION
  Report Type: 
  Country: None (occurrence: None)
  Receive Date: 20040903
  Receipt Date: 20040823
  Transmission Date: 20050211
  Serious: Yes (Other)
  Sender: FDA-Public Use
  Company Number: 2004059983

PATIENT
  Sex: Female

DRUGS (5)
  1. NEURONTIN [Suspect]
     Indication: ILL-DEFINED DISORDER
  2. VICODIN [Suspect]
     Indication: ILL-DEFINED DISORDER
  3. METHOCARBAMOL [Suspect]
     Indication: ILL-DEFINED DISORDER
  4. IBUPROFEN [Suspect]
     Indication: ILL-DEFINED DISORDER
  5. ACETAMINOPHEN [Suspect]
     Indication: ILL-DEFINED DISORDER

REACTIONS (4)
  - BONE PAIN [None]
  - COLON CANCER [None]
  - DRUG INEFFECTIVE [None]
  - PAIN [None]
